FAERS Safety Report 21494058 (Version 2)
Quarter: 2022Q4

REPORT INFORMATION
  Report Type: Report from Study
  Country: CH (occurrence: CH)
  Receive Date: 20221021
  Receipt Date: 20221107
  Transmission Date: 20230113
  Serious: Yes (Hospitalization)
  Sender: FDA-Public Use
  Company Number: CH-BoehringerIngelheim-2022-BI-155760

PATIENT
  Age: 69 Year
  Sex: Male
  Weight: 65 kg

DRUGS (9)
  1. OFEV [Suspect]
     Active Substance: NINTEDANIB
     Indication: Idiopathic pulmonary fibrosis
     Route: 048
     Dates: start: 20220221
  2. ALLOPURINOL [Concomitant]
     Active Substance: ALLOPURINOL
     Indication: Gout
     Dosage: 1/2 CPR
  3. Eclofenac 75mg [Concomitant]
     Indication: Gout
  4. TORSEMIDE [Concomitant]
     Active Substance: TORSEMIDE
     Indication: Product used for unknown indication
     Dosage: 1/2
  5. PANTOPRAZOLE SODIUM [Concomitant]
     Active Substance: PANTOPRAZOLE SODIUM
     Indication: Product used for unknown indication
  6. ATROVENT [Concomitant]
     Active Substance: IPRATROPIUM BROMIDE
     Indication: Product used for unknown indication
     Dosage: 2ML/250MICROG    1-0-0  IN ADDITION RESERVE
  7. OXYGEN [Concomitant]
     Active Substance: OXYGEN
     Indication: Product used for unknown indication
     Dosage: 2 LPM NIGHT, 4 LPM DURING EXERCISE
     Dates: start: 202111
  8. VENTOLIN [Concomitant]
     Active Substance: ALBUTEROL SULFATE
     Indication: Product used for unknown indication
     Dosage: 0.25-0-0  IN ADDITION RESERVE
  9. AYURVEDA [Concomitant]
     Indication: Product used for unknown indication
     Dates: start: 202206

REACTIONS (10)
  - Cystitis [Recovered/Resolved]
  - Diarrhoea [Recovered/Resolved]
  - COVID-19 [Recovered/Resolved]
  - Weight decreased [Recovered/Resolved]
  - Decreased appetite [Recovered/Resolved]
  - Diarrhoea [Not Recovered/Not Resolved]
  - Transaminases increased [Recovered/Resolved]
  - Lung disorder [Recovered/Resolved]
  - Dyspnoea [Not Recovered/Not Resolved]
  - Right ventricular enlargement [Not Recovered/Not Resolved]

NARRATIVE: CASE EVENT DATE: 20220222
